FAERS Safety Report 9856129 (Version 1)
Quarter: 2014Q1

REPORT INFORMATION
  Report Type: Report from Study
  Country: DE (occurrence: DE)
  Receive Date: 20140130
  Receipt Date: 20140130
  Transmission Date: 20141002
  Serious: Yes (Hospitalization)
  Sender: FDA-Public Use
  Company Number: DE-ABBVIE-14P-062-1193551-00

PATIENT
  Age: 50 Year
  Sex: Male
  Weight: 100 kg

DRUGS (2)
  1. HUMIRA [Suspect]
     Indication: PSORIASIS
     Route: 058
     Dates: start: 20130822
  2. BERODUAL [Concomitant]
     Indication: BRONCHITIS CHRONIC

REACTIONS (2)
  - Thrombophlebitis [Recovered/Resolved]
  - Venous insufficiency [Unknown]
